FAERS Safety Report 5108139-2 (Version None)
Quarter: 2006Q3

REPORT INFORMATION
  Report Type: 
  Country: None (occurrence: None)
  Receive Date: 20060919
  Receipt Date: 20060912
  Transmission Date: 20061208
  Serious: Yes (Hospitalization)
  Sender: FDA-Public Use
  Company Number: JP-GLAXOSMITHKLINE-B0438120A

PATIENT
  Age: 66 Year
  Sex: Female
  Weight: 56 kg

DRUGS (15)
  1. ALKERAN [Suspect]
     Indication: STEM CELL TRANSPLANT
     Dosage: 143MG PER DAY
     Route: 042
     Dates: start: 20051015, end: 20051016
  2. NEUTROGIN [Concomitant]
     Dosage: 250MG PER DAY
     Route: 042
     Dates: start: 20051019, end: 20051028
  3. SELBEX [Concomitant]
     Dosage: 150MG PER DAY
     Route: 048
     Dates: start: 20051015
  4. GASTER D [Concomitant]
     Dosage: 40MG PER DAY
     Route: 048
     Dates: start: 20051015
  5. BACTRIM [Concomitant]
     Route: 048
     Dates: start: 20051015
  6. ZOVIRAX [Concomitant]
     Dosage: 1000MG PER DAY
     Route: 048
     Dates: start: 20051015, end: 20051112
  7. DIFLUCAN [Concomitant]
     Dosage: 200MG PER DAY
     Route: 048
     Dates: start: 20051015, end: 20051127
  8. DIFLUCAN [Concomitant]
     Dosage: 100MG PER DAY
     Route: 048
     Dates: start: 20051128
  9. ZYLORIC [Concomitant]
     Dosage: 300MG PER DAY
     Dates: start: 20051015, end: 20051016
  10. LEVOFLOXACIN [Concomitant]
     Dosage: 300MG PER DAY
     Route: 048
     Dates: start: 20051015, end: 20051026
  11. KYTRIL [Concomitant]
     Dosage: 3ML PER DAY
     Route: 042
     Dates: start: 20051015, end: 20051018
  12. MEYLON [Concomitant]
     Dosage: 180ML PER DAY
     Route: 042
     Dates: start: 20051015, end: 20051016
  13. MAXIPIME [Concomitant]
     Dosage: 4G PER DAY
     Route: 042
     Dates: start: 20051025, end: 20051105
  14. IMMUNE GLOBULIN INTRAVENOUS (HUMAN) [Concomitant]
     Dosage: 5G PER DAY
     Route: 042
     Dates: start: 20051026, end: 20051026
  15. VOLTAREN [Concomitant]
     Dosage: 37.5MG PER DAY
     Route: 048
     Dates: start: 20051027, end: 20051029

REACTIONS (1)
  - FEBRILE NEUTROPENIA [None]
